FAERS Safety Report 4666473-4 (Version None)
Quarter: 2005Q2

REPORT INFORMATION
  Report Type: 
  Country: None (occurrence: None)
  Receive Date: 20050518
  Receipt Date: 20040805
  Transmission Date: 20051028
  Serious: No
  Sender: FDA-Public Use
  Company Number: 2004228035US

PATIENT
  Age: 50 Year
  Sex: Female
  Weight: 63.5 kg

DRUGS (1)
  1. PROVERA [Suspect]
     Indication: METRORRHAGIA
     Dosage: 40 MG, QD, ORAL
     Route: 048
     Dates: start: 20030701

REACTIONS (3)
  - FATIGUE [None]
  - HEADACHE [None]
  - MOOD SWINGS [None]
